FAERS Safety Report 21099289 (Version 4)
Quarter: 2022Q3

REPORT INFORMATION
  Report Type: Spontaneous
  Country: CZ (occurrence: CZ)
  Receive Date: 20220719
  Receipt Date: 20220826
  Transmission Date: 20221027
  Serious: Yes (Hospitalization, Other)
  Sender: FDA-Public Use
  Company Number: CZ-002147023-NVSC2022CZ152874

PATIENT
  Sex: Male
  Weight: 1.3 kg

DRUGS (4)
  1. ZONISAMIDE [Suspect]
     Active Substance: ZONISAMIDE
     Indication: Epilepsy
     Dosage: MATERNAL DOSE: UNK
     Route: 064
  2. CLONAZEPAM [Suspect]
     Active Substance: CLONAZEPAM
     Indication: Epilepsy
     Dosage: MATERNAL DOSE: UNK
     Route: 065
  3. VALPROIC ACID [Suspect]
     Active Substance: VALPROIC ACID
     Indication: Epilepsy
     Dosage: MATERNAL DOSE: UNK
     Route: 065
  4. PRIMIDONE [Suspect]
     Active Substance: PRIMIDONE
     Indication: Epilepsy
     Dosage: MATERNAL DOSE: UNK
     Route: 065

REACTIONS (4)
  - Premature baby [Recovered/Resolved]
  - Incubator therapy [Recovered/Resolved]
  - Low birth weight baby [Unknown]
  - Foetal exposure during pregnancy [Recovered/Resolved]
